FAERS Safety Report 20638635 (Version 1)
Quarter: 2022Q1

REPORT INFORMATION
  Report Type: Spontaneous
  Country: US (occurrence: US)
  Receive Date: 20220325
  Receipt Date: 20220325
  Transmission Date: 20220423
  Serious: Yes (Other)
  Sender: FDA-Public Use
  Company Number: US-AMERICAN REGENT INC-2022000739

PATIENT
  Age: 66 Year
  Sex: Female
  Weight: 62.9 kg

DRUGS (7)
  1. VENOFER [Suspect]
     Active Substance: IRON SUCROSE
     Indication: Product used for unknown indication
     Dosage: UNK, SIX DOSES
     Route: 042
  2. VENOFER [Suspect]
     Active Substance: IRON SUCROSE
     Dosage: 100 MILLIGRAM
     Dates: start: 20220209, end: 20220209
  3. MIRCERA [Suspect]
     Active Substance: METHOXY POLYETHYLENE GLYCOL-EPOETIN BETA
     Indication: Nephrogenic anaemia
     Dosage: 150 MICROGRAM, 1 IN 2 WK
     Dates: start: 20220126, end: 20220126
  4. MIRCERA [Suspect]
     Active Substance: METHOXY POLYETHYLENE GLYCOL-EPOETIN BETA
     Dosage: 200 MICROGRAM, 1 IN 2 WK
     Dates: start: 20220209, end: 20220209
  5. HECTOROL [Concomitant]
     Active Substance: DOXERCALCIFEROL
     Indication: Product used for unknown indication
     Dosage: UNK, SINGLE
  6. HECTOROL [Concomitant]
     Active Substance: DOXERCALCIFEROL
     Dosage: UNK, SINGLE
  7. HECTOROL [Concomitant]
     Active Substance: DOXERCALCIFEROL
     Dosage: 2 MICROGRAM, SINGLE
     Dates: start: 20220209, end: 20220209

REACTIONS (1)
  - Drug hypersensitivity [Recovered/Resolved]

NARRATIVE: CASE EVENT DATE: 20220126
